FAERS Safety Report 16360652 (Version 1)
Quarter: 2019Q2

REPORT INFORMATION
  Report Type: Spontaneous
  Country: US (occurrence: US)
  Receive Date: 20190528
  Receipt Date: 20190528
  Transmission Date: 20190711
  Serious: No
  Sender: FDA-Public Use
  Company Number: US-AMGEN-USASP2019081573

PATIENT
  Age: 71 Year
  Sex: Female

DRUGS (1)
  1. PROLIA [Suspect]
     Active Substance: DENOSUMAB
     Indication: OSTEOPOROSIS POSTMENOPAUSAL
     Dosage: 60 MILLIGRAM
     Route: 065
     Dates: start: 20190318

REACTIONS (7)
  - Asthenia [Unknown]
  - Dermal cyst [Unknown]
  - Diarrhoea [Unknown]
  - Personality change [Unknown]
  - Cyst rupture [Unknown]
  - Pain [Unknown]
  - Fatigue [Unknown]

NARRATIVE: CASE EVENT DATE: 20190319
